FAERS Safety Report 18574435 (Version 2)
Quarter: 2020Q4

REPORT INFORMATION
  Report Type: Spontaneous
  Country: DE (occurrence: DE)
  Receive Date: 20201203
  Receipt Date: 20201216
  Transmission Date: 20210114
  Serious: Yes (Other)
  Sender: FDA-Public Use
  Company Number: NVSC2020DE318632

PATIENT
  Age: 71 Year
  Sex: Male

DRUGS (15)
  1. VELMETIA [Concomitant]
     Active Substance: METFORMIN\SITAGLIPTIN
     Indication: DIABETES MELLITUS
     Dosage: UNK(50 MG/1000 MG) (1-0-1-0)
     Route: 065
     Dates: start: 20200928
  2. ALLOPURINOL. [Concomitant]
     Active Substance: ALLOPURINOL
     Indication: PRODUCT USED FOR UNKNOWN INDICATION
     Dosage: UNK(1-0-0 / EVERY 2ND DAY)(ABZ PHARMA)
     Route: 065
     Dates: start: 20190101
  3. PANTOPRAZOLE [Concomitant]
     Active Substance: PANTOPRAZOLE
     Indication: PRODUCT USED FOR UNKNOWN INDICATION
     Dosage: (0-0-1-0)(1 A PHARMA)
     Route: 065
  4. CANDESARTAN PLUS - 1 A PHARMA 32 MG/12,5 MG TABLETTEN [Suspect]
     Active Substance: CANDESARTAN CILEXETIL\HYDROCHLOROTHIAZIDE
     Indication: PRODUCT USED FOR UNKNOWN INDICATION
     Dosage: (32 MG/12,5 MG(1-0-0-0)
     Route: 065
     Dates: start: 20201111
  5. CANDESARTAN PLUS - 1 A PHARMA 32 MG/12,5 MG TABLETTEN [Suspect]
     Active Substance: CANDESARTAN CILEXETIL\HYDROCHLOROTHIAZIDE
     Dosage: UNK(32 MG/25 MG (1-0-0)
     Route: 065
     Dates: end: 2020
  6. M-STADA [Concomitant]
     Active Substance: MORPHINE HYDROCHLORIDE
     Indication: FEELING ABNORMAL
     Dosage: UNK(1-0-1-0)(SUSTAINED RELEASE TABLETS)
     Route: 065
  7. L-THYROXINE [Concomitant]
     Active Substance: LEVOTHYROXINE
     Indication: PRODUCT USED FOR UNKNOWN INDICATION
     Dosage: UNK(1-0-0)(ARISTO PHARMA)
     Route: 065
  8. MORPHIN [Concomitant]
     Active Substance: MORPHINE
     Indication: FEELING ABNORMAL
     Dosage: UNK(1-0-1)(KREWEL PHARMA)
     Route: 065
  9. SPIRONOLACTON [Concomitant]
     Active Substance: SPIRONOLACTONE
     Indication: PRODUCT USED FOR UNKNOWN INDICATION
     Dosage: UNK(?-0-0-0)
     Route: 065
     Dates: start: 20201111
  10. CANDESARTAN ZENTIVA [Suspect]
     Active Substance: CANDESARTAN CILEXETIL
     Indication: PRODUCT USED FOR UNKNOWN INDICATION
     Dosage: UNK, QD (1-0-0)
     Route: 065
     Dates: end: 2020
  11. JARDIANCE [Concomitant]
     Active Substance: EMPAGLIFLOZIN
     Indication: DIABETES MELLITUS
     Dosage: UNK(1-0-0-0)
     Route: 065
     Dates: start: 20200928
  12. BISOPROLOL [Concomitant]
     Active Substance: BISOPROLOL
     Indication: PRODUCT USED FOR UNKNOWN INDICATION
     Dosage: UNK (ABZ PHARMA)
     Route: 065
  13. BISOPROLOL - 1 A PHARMA [Suspect]
     Active Substance: BISOPROLOL
     Dosage: UNK(0-0-1)
     Route: 065
     Dates: end: 2020
  14. BISOPROLOL - 1 A PHARMA [Suspect]
     Active Substance: BISOPROLOL
     Indication: PRODUCT USED FOR UNKNOWN INDICATION
     Dosage: UNK(0-0-1-0)
     Route: 065
     Dates: start: 2020
  15. TERBINAFIN BETA [Concomitant]
     Indication: ONYCHOMYCOSIS
     Dosage: UNK(1 X WEEKLY)
     Route: 065
     Dates: end: 202010

REACTIONS (16)
  - Syncope [Unknown]
  - Inappropriate schedule of product administration [Unknown]
  - Taste disorder [Unknown]
  - Paraesthesia [Unknown]
  - Blood pressure abnormal [Recovering/Resolving]
  - Depression [Unknown]
  - Dry mouth [Recovering/Resolving]
  - Diabetes mellitus [Recovering/Resolving]
  - Tongue discomfort [Unknown]
  - Anxiety [Unknown]
  - Restlessness [Unknown]
  - Oral discomfort [Unknown]
  - Tooth disorder [Unknown]
  - Tremor [Unknown]
  - Hyperhidrosis [Unknown]
  - Feeling abnormal [Unknown]

NARRATIVE: CASE EVENT DATE: 2020
